FAERS Safety Report 19996686 (Version 1)
Quarter: 2021Q4

REPORT INFORMATION
  Report Type: Report from Study
  Country: CA (occurrence: CA)
  Receive Date: 20211026
  Receipt Date: 20211026
  Transmission Date: 20220303
  Serious: Yes (Other)
  Sender: FDA-Public Use
  Company Number: CA-TAKEDA-2021TUS059358

PATIENT
  Age: 64 Year
  Sex: Female

DRUGS (5)
  1. VEDOLIZUMAB [Suspect]
     Active Substance: VEDOLIZUMAB
     Indication: Colitis ulcerative
     Dosage: 300 MILLIGRAM
     Route: 042
     Dates: start: 20210907
  2. PREDNISONE [Concomitant]
     Active Substance: PREDNISONE
     Dosage: 40 MILLIGRAM
     Route: 048
     Dates: start: 20210622
  3. Salofalk [Concomitant]
     Dosage: 1 GRAM, QD
     Route: 061
     Dates: start: 20210609
  4. Salofalk [Concomitant]
     Dosage: UNK UNK, QD
  5. CORTISONE [Concomitant]
     Active Substance: CORTISONE
     Dosage: UNK
     Dates: start: 20210619

REACTIONS (4)
  - Loss of consciousness [Unknown]
  - Vomiting [Unknown]
  - Diarrhoea [Unknown]
  - Fall [Unknown]

NARRATIVE: CASE EVENT DATE: 20210921
